FAERS Safety Report 23554616 (Version 1)
Quarter: 2024Q1

REPORT INFORMATION
  Report Type: Spontaneous
  Country: CZ (occurrence: None)
  Receive Date: 20240222
  Receipt Date: 20240222
  Transmission Date: 20240410
  Serious: Yes (Other)
  Sender: FDA-Public Use
  Company Number: 2024A025465

PATIENT
  Sex: Female

DRUGS (1)
  1. ROSUVASTATIN [Suspect]
     Active Substance: ROSUVASTATIN
     Indication: Product used for unknown indication

REACTIONS (4)
  - Rhabdomyolysis [Unknown]
  - Toxicity to various agents [Unknown]
  - Overdose [Unknown]
  - Contraindicated product administered [Unknown]
